FAERS Safety Report 15535501 (Version 1)
Quarter: 2018Q4

REPORT INFORMATION
  Report Type: Spontaneous
  Country: US (occurrence: US)
  Receive Date: 20181015
  Receipt Date: 20181015
  Transmission Date: 20190205
  Serious: No
  Sender: FDA-Public Use
  Company Number: None

PATIENT
  Age: 47 Year
  Sex: Male
  Weight: 97.98 kg

DRUGS (1)
  1. CIMZIA [Suspect]
     Active Substance: CERTOLIZUMAB PEGOL
     Indication: ANKYLOSING SPONDYLITIS
     Dosage: INJECTED 400MG (2 VIALS) SUBCUTANEOUSLY AT WEEKS 0, 2, \T\ 4 AS DIRECTED?
     Route: 058
     Dates: start: 201808

REACTIONS (1)
  - Pruritus [None]
